FAERS Safety Report 6295976-4 (Version None)
Quarter: 2009Q3

REPORT INFORMATION
  Report Type: 
  Country: None (occurrence: None)
  Receive Date: 20090803
  Receipt Date: 20090803
  Transmission Date: 20100115
  Serious: Yes (Hospitalization)
  Sender: FDA-Public Use
  Company Number: None

PATIENT
  Age: 39 Year
  Sex: Female
  Weight: 84.8226 kg

DRUGS (2)
  1. LAPATINIB, 250 MG (GLAXOSMITHKLINE) [Suspect]
     Indication: BREAST CANCER
     Dosage: 1000 MG PO QD
     Dates: start: 20090522
  2. HERCEPTIN [Concomitant]

REACTIONS (1)
  - CHOLELITHIASIS [None]
